FAERS Safety Report 23635053 (Version 1)
Quarter: 2024Q1

REPORT INFORMATION
  Report Type: Report from Study
  Country: MX (occurrence: MX)
  Receive Date: 20240315
  Receipt Date: 20240315
  Transmission Date: 20240410
  Serious: Yes (Hospitalization)
  Sender: FDA-Public Use
  Company Number: MX-Merck Healthcare KGaA-2024013517

PATIENT
  Sex: Female

DRUGS (3)
  1. REBIF [Suspect]
     Active Substance: INTERFERON BETA-1A
     Indication: Multiple sclerosis
     Route: 058
     Dates: start: 20220718
  2. GABAPENTIN [Concomitant]
     Active Substance: GABAPENTIN
     Indication: Neuralgia
     Dosage: AT NIGHT, FOR 4 YEARS (AS OF 08-MAR-2024)
  3. MIRTAZAPINE [Concomitant]
     Active Substance: MIRTAZAPINE
     Indication: Antidepressant therapy
     Dosage: HALF A TABLET AT NIGHT, HALF A YEAR AGO (AS OF 08-MAR-2024)

REACTIONS (1)
  - Tachycardia [Recovered/Resolved]
